FAERS Safety Report 7227418-6 (Version None)
Quarter: 2011Q1

REPORT INFORMATION
  Report Type: 
  Country: None (occurrence: None)
  Receive Date: 20110114
  Receipt Date: 20110106
  Transmission Date: 20110831
  Serious: Yes (Other)
  Sender: FDA-Public Use
  Company Number: CA-JNJFOC-20110102385

PATIENT
  Sex: Male
  Weight: 79 kg

DRUGS (3)
  1. SOLU-CORTEF [Concomitant]
     Indication: PREMEDICATION
     Route: 042
  2. REMICADE [Suspect]
     Indication: CROHN'S DISEASE
     Route: 042
  3. REMICADE [Suspect]
     Route: 042

REACTIONS (5)
  - DYSPNOEA [None]
  - FLUSHING [None]
  - NAUSEA [None]
  - HEART RATE INCREASED [None]
  - INFUSION RELATED REACTION [None]
